FAERS Safety Report 9688507 (Version 2)
Quarter: 2013Q4

REPORT INFORMATION
  Report Type: Spontaneous
  Country: IT (occurrence: IT)
  Receive Date: 20131114
  Receipt Date: 20131121
  Transmission Date: 20140711
  Serious: Yes (Hospitalization)
  Sender: FDA-Public Use
  Company Number: IT-JNJFOC-20131104545

PATIENT
  Age: 30 Year
  Sex: Female

DRUGS (2)
  1. SERENASE [Suspect]
     Indication: PSYCHOTIC DISORDER
     Route: 030
     Dates: start: 20130903, end: 20130905
  2. EN [Concomitant]
     Indication: PRODUCT USED FOR UNKNOWN INDICATION
     Route: 030
     Dates: start: 20130904, end: 20130905

REACTIONS (1)
  - Bradycardia [Recovered/Resolved]
